FAERS Safety Report 6494953-8 (Version None)
Quarter: 2009Q4

REPORT INFORMATION
  Report Type: 
  Country: None (occurrence: None)
  Receive Date: 20091214
  Receipt Date: 20090413
  Transmission Date: 20100525
  Serious: No
  Sender: FDA-Public Use
  Company Number: US-BRISTOL-MYERS SQUIBB COMPANY-14585301

PATIENT
  Age: 64 Year
  Sex: Female
  Weight: 63 kg

DRUGS (11)
  1. ABILIFY [Suspect]
     Indication: BRAIN NEOPLASM
     Dosage: DOSE WAS DECREASED IN AUG08  DISCONTINUED IN NOV08.
     Dates: end: 20081101
  2. ABILIFY [Suspect]
     Indication: DEPRESSION
     Dosage: DOSE WAS DECREASED IN AUG08  DISCONTINUED IN NOV08.
     Dates: end: 20081101
  3. COLACE [Concomitant]
  4. COUMADIN [Concomitant]
  5. EFFEXOR [Concomitant]
  6. FOSAMAX [Concomitant]
  7. LEVOTHYROXINE SODIUM [Concomitant]
  8. METOPROLOL [Concomitant]
  9. OXYBUTYNIN CHLORIDE [Concomitant]
  10. TRAZODONE HCL [Concomitant]
  11. WELLBUTRIN [Concomitant]

REACTIONS (9)
  - BONE PAIN [None]
  - DYSPHAGIA [None]
  - DYSPNOEA [None]
  - EAR PAIN [None]
  - PHARYNGEAL ULCERATION [None]
  - SWOLLEN TONGUE [None]
  - TARDIVE DYSKINESIA [None]
  - TONGUE ULCERATION [None]
  - VISION BLURRED [None]
